FAERS Safety Report 19291837 (Version 5)
Quarter: 2021Q4

REPORT INFORMATION
  Report Type: Report from Study
  Country: US (occurrence: US)
  Receive Date: 20210524
  Receipt Date: 20211119
  Transmission Date: 20220304
  Serious: Yes (Hospitalization, Other)
  Sender: FDA-Public Use
  Company Number: US-ABBVIE-21K-163-3867571-00

PATIENT
  Age: 73 Year
  Sex: Male
  Weight: 108.96 kg

DRUGS (7)
  1. HUMIRA [Suspect]
     Active Substance: ADALIMUMAB
     Indication: Uveitis
     Dosage: CITRATE FREE
     Route: 058
     Dates: start: 20200325, end: 20210410
  2. HUMIRA [Suspect]
     Active Substance: ADALIMUMAB
     Dosage: CITRATE FREE
     Route: 058
     Dates: start: 20210410
  3. CELLCEPT [Concomitant]
     Active Substance: MYCOPHENOLATE MOFETIL\MYCOPHENOLATE MOFETIL HYDROCHLORIDE
     Indication: Retinal haemorrhage
     Dates: start: 202012
  4. METHOTREXATE [Concomitant]
     Active Substance: METHOTREXATE
     Indication: Retinal haemorrhage
     Dates: start: 202003, end: 202012
  5. PFIZER-BIONTECH COVID-19 VACCINE [Concomitant]
     Active Substance: TOZINAMERAN
     Indication: COVID-19 immunisation
     Dosage: 1ST DOSE
     Route: 030
     Dates: start: 20210210, end: 20210210
  6. PFIZER-BIONTECH COVID-19 VACCINE [Concomitant]
     Active Substance: TOZINAMERAN
     Dosage: 2ND DOSE
     Route: 030
     Dates: start: 20210224, end: 20210224
  7. EYLEA [Concomitant]
     Active Substance: AFLIBERCEPT
     Indication: Retinal haemorrhage

REACTIONS (9)
  - Cataract [Not Recovered/Not Resolved]
  - Spinal operation [Recovering/Resolving]
  - Photopsia [Recovering/Resolving]
  - Eye haemorrhage [Not Recovered/Not Resolved]
  - Injury corneal [Recovering/Resolving]
  - Retinal scar [Unknown]
  - Atrial fibrillation [Unknown]
  - Back pain [Recovering/Resolving]
  - Uveitis [Recovering/Resolving]

NARRATIVE: CASE EVENT DATE: 20201101
